FAERS Safety Report 7082543-8 (Version None)
Quarter: 2010Q3

REPORT INFORMATION
  Report Type: 
  Country: None (occurrence: None)
  Receive Date: 20100929
  Receipt Date: 20100601
  Transmission Date: 20110219
  Serious: No
  Sender: FDA-Public Use
  Company Number: US-WYE-H15466710

PATIENT
  Age: 67 Year
  Sex: Female
  Weight: 64.01 kg

DRUGS (9)
  1. PRISTIQ [Suspect]
     Indication: DEPRESSION
     Dosage: 15 MG 1X PER 1 DAY, ORAL
     Route: 048
     Dates: start: 20100520
  2. OXYCONTIN [Concomitant]
  3. XANAX [Concomitant]
  4. PLAVIX [Concomitant]
  5. PREVACID [Concomitant]
  6. TOPROL-XL [Concomitant]
  7. MAVIK [Concomitant]
  8. VYTORIN [Concomitant]
  9. TEGRETOL [Concomitant]

REACTIONS (6)
  - BLOOD GLUCOSE DECREASED [None]
  - DIZZINESS [None]
  - EATING DISORDER [None]
  - FEELING ABNORMAL [None]
  - NAUSEA [None]
  - PRURITUS [None]
